FAERS Safety Report 5370696-9 (Version None)
Quarter: 2007Q2

REPORT INFORMATION
  Report Type: 
  Country: None (occurrence: None)
  Receive Date: 20070618
  Receipt Date: 20060825
  Transmission Date: 20071010
  Serious: Yes (Hospitalization)
  Sender: FDA-Public Use
  Company Number: PHEH2006US10979

PATIENT
  Age: 83 Year
  Sex: Female

DRUGS (1)
  1. GLEEVEC [Suspect]
     Dosage: ORAL
     Route: 048
     Dates: start: 19960101

REACTIONS (1)
  - PLEURAL EFFUSION [None]
